FAERS Safety Report 6160758-0 (Version None)
Quarter: 2009Q2

REPORT INFORMATION
  Report Type: 
  Country: None (occurrence: None)
  Receive Date: 20090416
  Receipt Date: 20090403
  Transmission Date: 20091009
  Serious: Yes (Death, Hospitalization, Other)
  Sender: FDA-Public Use
  Company Number: 2009001003

PATIENT
  Age: 52 Year
  Sex: Female

DRUGS (6)
  1. ERLOTINIB (ERLOTINIB) (TABLET) (ERLOTINIB) [Suspect]
     Indication: NON-SMALL CELL LUNG CANCER
     Dosage: 150 MG, QD), ORAL
     Route: 048
     Dates: start: 20071218, end: 20080201
  2. LANSOPRAZOLE [Concomitant]
  3. GABAPENTIN [Concomitant]
  4. MORPHINE SULFATE [Concomitant]
  5. PREDNISOLONE [Concomitant]
  6. TINZAPARIN [Concomitant]

REACTIONS (7)
  - ABDOMINAL PAIN [None]
  - DIARRHOEA [None]
  - IMMUNE SYSTEM DISORDER [None]
  - INSOMNIA [None]
  - PNEUMONIA [None]
  - SEPSIS [None]
  - URINARY TRACT INFECTION [None]
